FAERS Safety Report 11726863 (Version 5)
Quarter: 2016Q4

REPORT INFORMATION
  Report Type: Spontaneous
  Country: ES (occurrence: ES)
  Receive Date: 20151112
  Receipt Date: 20161028
  Transmission Date: 20170206
  Serious: Yes (Life-Threatening)
  Sender: FDA-Public Use
  Company Number: ES-009507513-1511ESP004990

PATIENT
  Age: 37 Year
  Sex: Female
  Weight: 57 kg

DRUGS (1)
  1. IMPLANON [Suspect]
     Active Substance: ETONOGESTREL
     Indication: CONTRACEPTION
     Dosage: 68 MG, ONCE
     Route: 058
     Dates: start: 20140526, end: 20150901

REACTIONS (1)
  - Breast cancer [Recovered/Resolved with Sequelae]

NARRATIVE: CASE EVENT DATE: 20150827
